FAERS Safety Report 19422182 (Version 1)
Quarter: 2021Q2

REPORT INFORMATION
  Report Type: Spontaneous
  Country: PL (occurrence: PL)
  Receive Date: 20210616
  Receipt Date: 20210616
  Transmission Date: 20210717
  Serious: Yes (Hospitalization, Other)
  Sender: FDA-Public Use
  Company Number: PL-DENTSPLY-2021SCDP000172

PATIENT
  Age: 41 Year
  Sex: Male

DRUGS (16)
  1. SACUBITRIL;VALSARTAN [Suspect]
     Active Substance: SACUBITRIL\VALSARTAN
     Dosage: UNK 24/26 MG, 2X1 TABLET
     Route: 065
     Dates: start: 20201120
  2. DIGOXIN. [Suspect]
     Active Substance: DIGOXIN
     Indication: CARDIAC FAILURE
     Dosage: UNK 1 AMPOULE
     Route: 042
  3. AMIODARONE [Suspect]
     Active Substance: AMIODARONE
     Indication: CARDIAC FAILURE
     Dosage: UNK
     Route: 042
     Dates: start: 20201123
  4. AMIODARONE [Suspect]
     Active Substance: AMIODARONE
     Dosage: UNK
     Route: 042
     Dates: start: 20201121
  5. CARVEDILOL. [Suspect]
     Active Substance: CARVEDILOL
     Indication: CARDIAC FAILURE
     Dosage: 3.13 MILLIGRAM (3.125 MG)
     Route: 065
  6. EPLERENONE. [Suspect]
     Active Substance: EPLERENONE
     Indication: CARDIAC FAILURE
     Dosage: 25 MILLIGRAM
     Route: 065
  7. PERINDOPRIL [Suspect]
     Active Substance: PERINDOPRIL
     Indication: CARDIAC FAILURE
     Dosage: 5 MILLIGRAM
     Route: 065
  8. LIDOCAINE. [Suspect]
     Active Substance: LIDOCAINE
     Indication: CARDIAC FAILURE
     Dosage: UNK
     Route: 042
     Dates: start: 20201121
  9. ENOXAPARIN [Suspect]
     Active Substance: ENOXAPARIN
     Indication: CARDIAC FAILURE
     Dosage: 80 MILLIGRAM, 2X1 AMPOULE
     Route: 058
  10. PROPRANOLOL [Suspect]
     Active Substance: PROPRANOLOL HYDROCHLORIDE
     Indication: CARDIAC FAILURE
     Dosage: 20 MILLIGRAM, 3X
     Route: 065
     Dates: start: 20201120
  11. TORASEMIDE [Suspect]
     Active Substance: TORSEMIDE
     Indication: CARDIAC FAILURE
     Dosage: 20 MILLIGRAM
     Route: 048
  12. METOPROLOL SUCCINATE. [Suspect]
     Active Substance: METOPROLOL SUCCINATE
     Indication: CARDIAC FAILURE
     Dosage: 50 MILLIGRAM, 2X
     Route: 065
     Dates: start: 20201123
  13. FUROSEMIDE. [Suspect]
     Active Substance: FUROSEMIDE
     Indication: CARDIAC FAILURE
     Dosage: UNK (2X1 AMPULE)
     Route: 042
  14. ATORVASTATIN [Suspect]
     Active Substance: ATORVASTATIN
     Indication: CARDIAC FAILURE
     Dosage: 80 MILLIGRAM
     Route: 065
  15. SACUBITRIL;VALSARTAN [Suspect]
     Active Substance: SACUBITRIL\VALSARTAN
     Indication: CARDIAC FAILURE
     Dosage: UNK 49/51 MG, 2X TABLET
     Route: 065
     Dates: start: 20201125
  16. AMIODARONE [Suspect]
     Active Substance: AMIODARONE
     Dosage: UNK
     Route: 042
     Dates: start: 20201117

REACTIONS (7)
  - Cardiac arrest [Recovered/Resolved]
  - Product use in unapproved indication [Unknown]
  - Pyrexia [Unknown]
  - Electrocardiogram QT prolonged [Unknown]
  - Myocarditis [Unknown]
  - Hypotonia [Unknown]
  - Psychotic disorder [Unknown]

NARRATIVE: CASE EVENT DATE: 20201117
